FAERS Safety Report 5562441-9 (Version None)
Quarter: 2007Q4

REPORT INFORMATION
  Report Type: 
  Country: None (occurrence: None)
  Receive Date: 20071215
  Receipt Date: 20070309
  Transmission Date: 20080405
  Serious: No
  Sender: FDA-Public Use
  Company Number: US-AMGEN-US195616

PATIENT
  Sex: Female
  Weight: 45.2 kg

DRUGS (5)
  1. ENBREL [Suspect]
     Indication: RHEUMATOID ARTHRITIS
     Route: 058
     Dates: start: 20040301
  2. METHOTREXATE [Concomitant]
     Dates: start: 20040601
  3. RELAFEN [Concomitant]
     Route: 065
  4. LYRICA [Concomitant]
     Route: 065
  5. GLUCOPHAGE [Concomitant]

REACTIONS (6)
  - ANKLE FRACTURE [None]
  - HYPOAESTHESIA [None]
  - INJURY [None]
  - NERVE COMPRESSION [None]
  - NEUTROPHIL PELGER-HUET ANOMALY PRESENT [None]
  - TENDON INJURY [None]
